FAERS Safety Report 9654197 (Version 1)
Quarter: 2013Q4

REPORT INFORMATION
  Report Type: Spontaneous
  Country: FR (occurrence: FR)
  Receive Date: 20131029
  Receipt Date: 20131029
  Transmission Date: 20140711
  Serious: Yes (Death, Hospitalization)
  Sender: FDA-Public Use
  Company Number: FR-BRISTOL-MYERS SQUIBB COMPANY-19609700

PATIENT
  Age: 77 Year
  Sex: Female

DRUGS (3)
  1. COUMADIN TABS 2 MG [Suspect]
     Route: 048
     Dates: start: 20130901
  2. LEVOTHYROX [Concomitant]
  3. INEXIUM [Concomitant]

REACTIONS (3)
  - Melaena [Fatal]
  - Anaemia [Fatal]
  - Cardiac failure [Fatal]
